FAERS Safety Report 12826510 (Version 1)
Quarter: 2016Q4

REPORT INFORMATION
  Report Type: Spontaneous
  Country: JP (occurrence: JP)
  Receive Date: 20161006
  Receipt Date: 20161006
  Transmission Date: 20170207
  Serious: Yes (Other)
  Sender: FDA-Public Use
  Company Number: JP-SA-2016SA181596

PATIENT
  Age: 38 Year
  Sex: Male
  Weight: 64.5 kg

DRUGS (12)
  1. TUBERMIN [Suspect]
     Active Substance: ETHIONAMIDE
     Indication: TUBERCULOSIS
     Route: 048
     Dates: start: 20150701, end: 20150714
  2. CRAVIT [Suspect]
     Active Substance: LEVOFLOXACIN
     Indication: TUBERCULOSIS
     Route: 048
     Dates: start: 20150601
  3. DEPAS [Suspect]
     Active Substance: ETIZOLAM
     Indication: DEPRESSION
     Route: 048
     Dates: start: 20150901
  4. PYRAZINAMIDE. [Suspect]
     Active Substance: PYRAZINAMIDE
     Indication: TUBERCULOSIS
     Route: 048
     Dates: start: 20150601
  5. CYCLOSERINE. [Suspect]
     Active Substance: CYCLOSERINE
     Indication: TUBERCULOSIS
     Route: 048
     Dates: start: 20150601
  6. LENDORMIN [Suspect]
     Active Substance: BROTIZOLAM
     Route: 048
     Dates: start: 20150810
  7. DELTYBA [Suspect]
     Active Substance: DELAMANID
     Indication: TUBERCULOSIS
     Route: 048
     Dates: start: 20150604
  8. KANAMYCIN SULFATE [Concomitant]
     Active Substance: KANAMYCIN SULFATE
     Indication: TUBERCULOSIS
     Route: 065
     Dates: start: 20150601, end: 20151223
  9. ALLEGRA [Suspect]
     Active Substance: FEXOFENADINE HYDROCHLORIDE
     Indication: RASH
     Route: 048
     Dates: start: 20150929
  10. TUBERMIN [Suspect]
     Active Substance: ETHIONAMIDE
     Indication: TUBERCULOSIS
     Route: 048
     Dates: start: 20150601, end: 20150630
  11. ESOMEPRAZOLE MAGNESIUM. [Suspect]
     Active Substance: ESOMEPRAZOLE MAGNESIUM
     Indication: DECREASED APPETITE
     Route: 048
     Dates: start: 20150729
  12. TUBERMIN [Suspect]
     Active Substance: ETHIONAMIDE
     Indication: TUBERCULOSIS
     Route: 048
     Dates: start: 20150715, end: 20151006

REACTIONS (3)
  - Rash [Recovering/Resolving]
  - Therapeutic response decreased [Recovering/Resolving]
  - White blood cell count decreased [Recovered/Resolved]

NARRATIVE: CASE EVENT DATE: 20150929
